FAERS Safety Report 9437862 (Version 1)
Quarter: 2013Q3

REPORT INFORMATION
  Report Type: Spontaneous
  Country: US (occurrence: US)
  Receive Date: 20130802
  Receipt Date: 20130802
  Transmission Date: 20140515
  Serious: No
  Sender: FDA-Public Use
  Company Number: US-BRISTOL-MYERS SQUIBB COMPANY-18708297

PATIENT
  Age: 59 Year
  Sex: Male
  Weight: 131.52 kg

DRUGS (1)
  1. COUMADIN TABS [Suspect]
     Indication: THROMBOSIS
     Dosage: DOSAGE: 2MG, 2DAYS/WEEK, 5-7 2MG TABS/DAY AND NOT LESS THAN 10MG IN LAST 3 WEEKS.

REACTIONS (1)
  - International normalised ratio decreased [Unknown]
